FAERS Safety Report 8000738 (Version 3)
Quarter: 2013Q2

REPORT INFORMATION
  Report Type: Spontaneous
  Country: US (occurrence: US)
  Receive Date: 20110621
  Receipt Date: 20130425
  Transmission Date: 20140414
  Serious: Yes (Hospitalization)
  Sender: FDA-Public Use
  Company Number: US-ASTRAZENECA-2010SE37043

PATIENT
  Age: 93 Year
  Sex: Female

DRUGS (9)
  1. PULMICORT RESPULES/FLEXHALER [Suspect]
     Indication: CHRONIC OBSTRUCTIVE PULMONARY DISEASE
     Dosage: 0.5 MG IN 2 ML DAILY
     Route: 055
  2. PULMICORT RESPULES/FLEXHALER [Suspect]
     Indication: CHRONIC OBSTRUCTIVE PULMONARY DISEASE
     Route: 055
  3. BUDESONIDE [Suspect]
     Dosage: GENERIC
     Route: 065
  4. ALBUTEROL [Concomitant]
  5. OMEPRAZOLE [Concomitant]
  6. AMLODIPINE [Concomitant]
  7. LISINOPRIL [Concomitant]
  8. BROVANA [Concomitant]
  9. SPIRIVA INHALANT [Concomitant]

REACTIONS (6)
  - Hyponatraemia [Unknown]
  - Lung infection [Unknown]
  - Pneumonia [Unknown]
  - Off label use [Unknown]
  - Intentional drug misuse [Unknown]
  - Drug intolerance [Unknown]
